FAERS Safety Report 9391551 (Version 2)
Quarter: 2013Q3

REPORT INFORMATION
  Report Type: Spontaneous
  Country: JP (occurrence: JP)
  Receive Date: 20130709
  Receipt Date: 20130718
  Transmission Date: 20140515
  Serious: No
  Sender: FDA-Public Use
  Company Number: JP-JNJFOC-20130700292

PATIENT
  Age: 86 Year
  Sex: Female

DRUGS (8)
  1. TRAMCET [Suspect]
     Indication: PAIN
     Dosage: ONE PER DAY
     Route: 048
  2. TRAMCET [Suspect]
     Indication: PAIN
     Dosage: ONE PER DAY
     Route: 048
  3. PRIMPERAN [Concomitant]
     Route: 048
  4. PRIMPERAN [Concomitant]
     Route: 048
  5. MEXITIL [Concomitant]
     Dosage: 1 IN 1 DAY
     Route: 065
  6. EXCELASE [Concomitant]
     Dosage: 1 IN 1 DAY
     Route: 048
  7. LOPRESSOR [Concomitant]
     Dosage: 1 IN 1 DAY
     Route: 048
  8. NEO DOPASTON [Concomitant]
     Dosage: 1 IN 1 DAY
     Route: 048

REACTIONS (1)
  - Nausea [Recovered/Resolved]
